FAERS Safety Report 7809503-0 (Version None)
Quarter: 2011Q4

REPORT INFORMATION
  Report Type: 
  Country: None (occurrence: None)
  Receive Date: 20111007
  Receipt Date: 20110910
  Transmission Date: 20120403
  Serious: Yes (Other)
  Sender: FDA-Public Use
  Company Number: TOR 2011-0050

PATIENT
  Age: 55 Year
  Sex: Female

DRUGS (2)
  1. TOREMIFENE (TOREMIFENE) [Suspect]
     Indication: BREAST CANCER METASTATIC
     Dosage: 120 MG/DAY ORAL
     Route: 048
  2. DOCETAXEL [Suspect]
     Indication: BREAST CANCER METASTATIC
     Dosage: 50 MG/M2/DOSE ON DAY 1 EVERY 3 WEEKS

REACTIONS (3)
  - FLUSHING [None]
  - THROMBOPHLEBITIS [None]
  - ALOPECIA [None]
